FAERS Safety Report 15724342 (Version 3)
Quarter: 2018Q4

REPORT INFORMATION
  Report Type: Report from Study
  Country: CA (occurrence: CA)
  Receive Date: 20181214
  Receipt Date: 20181221
  Transmission Date: 20190205
  Serious: Yes (Other)
  Sender: FDA-Public Use
  Company Number: CA-GLAXOSMITHKLINE-CA2018GSK224052

PATIENT
  Age: 48 Year
  Sex: Female

DRUGS (8)
  1. SYMBICORT [Suspect]
     Active Substance: BUDESONIDE\FORMOTEROL FUMARATE DIHYDRATE
     Indication: PRODUCT USED FOR UNKNOWN INDICATION
     Dosage: 2 PUFF(S), BID
     Route: 055
  2. SALBUTAMOL [Suspect]
     Active Substance: ALBUTEROL
     Indication: PRODUCT USED FOR UNKNOWN INDICATION
     Dosage: UNK
  3. SPIRIVA [Suspect]
     Active Substance: TIOTROPIUM BROMIDE MONOHYDRATE
     Indication: PRODUCT USED FOR UNKNOWN INDICATION
     Dosage: UNK
  4. DEXILANT [Concomitant]
     Active Substance: DEXLANSOPRAZOLE
     Indication: PRODUCT USED FOR UNKNOWN INDICATION
     Dosage: UNK UNK, PRN
  5. VENTOLIN [Suspect]
     Active Substance: ALBUTEROL SULFATE
     Indication: PRODUCT USED FOR UNKNOWN INDICATION
     Dosage: UNK UNK, PRN
  6. TERBUTALINE [Suspect]
     Active Substance: TERBUTALINE
     Indication: PRODUCT USED FOR UNKNOWN INDICATION
     Dosage: UNK
  7. FLUTICASONE FUROATE + VILANTEROL TRIFENATATE [Suspect]
     Active Substance: FLUTICASONE FUROATE\VILANTEROL TRIFENATATE
     Indication: PRODUCT USED FOR UNKNOWN INDICATION
     Dosage: 1 PUFF(S), QD
     Route: 055
  8. SINGULAIR [Suspect]
     Active Substance: MONTELUKAST SODIUM
     Indication: PRODUCT USED FOR UNKNOWN INDICATION
     Dosage: UNK

REACTIONS (29)
  - Cough [Unknown]
  - Nausea [Unknown]
  - Ill-defined disorder [Unknown]
  - Hyperthermia [Unknown]
  - Dyspnoea [Unknown]
  - Breath sounds abnormal [Unknown]
  - Loss of personal independence in daily activities [Unknown]
  - Sputum discoloured [Unknown]
  - Bronchial obstruction [Unknown]
  - Pyrexia [Unknown]
  - Dyspnoea exertional [Unknown]
  - Sputum increased [Unknown]
  - Fatigue [Unknown]
  - Conjunctivitis [Unknown]
  - Hyperaemia [Unknown]
  - Cushingoid [Unknown]
  - Drug ineffective [Unknown]
  - Discoloured vomit [Not Recovered/Not Resolved]
  - Throat irritation [Unknown]
  - Rhinitis [Unknown]
  - Chest pain [Recovered/Resolved]
  - Respiratory tract infection [Unknown]
  - Asthma [Unknown]
  - Sleep disorder [Recovered/Resolved]
  - Chest discomfort [Unknown]
  - Bronchitis [Unknown]
  - Eosinophilia [Unknown]
  - Wheezing [Unknown]
  - Dyspepsia [Unknown]

NARRATIVE: CASE EVENT DATE: 20181123
